FAERS Safety Report 11238173 (Version 1)
Quarter: 2015Q3

REPORT INFORMATION
  Report Type: Spontaneous
  Country: DE (occurrence: DE)
  Receive Date: 20150703
  Receipt Date: 20150703
  Transmission Date: 20151125
  Serious: Yes (Other)
  Sender: FDA-Public Use
  Company Number: DE-GLAXOSMITHKLINE-DE2015GSK095931

PATIENT
  Age: 34 Year
  Sex: Female

DRUGS (5)
  1. CEFUROXIME. [Suspect]
     Active Substance: CEFUROXIME
     Dosage: 750 MG, TID
  2. PARTUSISTEN [Suspect]
     Active Substance: FENOTEROL
  3. CLINDAMYCIN [Suspect]
     Active Substance: CLINDAMYCIN\CLINDAMYCIN PHOSPHATE
     Dosage: 600 MG, QD
  4. METRONIDAZOLE. [Suspect]
     Active Substance: METRONIDAZOLE
     Dosage: 500 MG, QID
  5. BETAMETHASONE. [Suspect]
     Active Substance: BETAMETHASONE

REACTIONS (4)
  - Exposure during pregnancy [Unknown]
  - Live birth [Unknown]
  - Oligohydramnios [Unknown]
  - Premature rupture of membranes [Unknown]
